FAERS Safety Report 8016855-8 (Version None)
Quarter: 2012Q1

REPORT INFORMATION
  Report Type: 
  Country: None (occurrence: None)
  Receive Date: 20120102
  Receipt Date: 20111221
  Transmission Date: 20120608
  Serious: Yes (Hospitalization, Other)
  Sender: FDA-Public Use
  Company Number: PHHY2011JP109566

PATIENT
  Age: 66 Year
  Sex: Female

DRUGS (10)
  1. FLUOROURACIL [Concomitant]
     Dosage: UNK
     Route: 048
     Dates: start: 20060801
  2. LETROZOLE [Suspect]
     Indication: BREAST CANCER
     Route: 048
     Dates: start: 20070201
  3. ANASTROZOLE [Concomitant]
     Dosage: UNK UKN, UNK
     Route: 048
     Dates: start: 20080401
  4. CYCLOPHOSPHAMIDE [Concomitant]
     Dosage: UNK UKN, UNK
     Route: 048
     Dates: start: 20070301, end: 20070501
  5. DOCETAXEL [Concomitant]
     Dates: start: 20060801
  6. CAPECITABINE [Concomitant]
     Dosage: UNK UKN, UNK
     Route: 048
     Dates: start: 20070601, end: 20070901
  7. TOREMIFENE [Concomitant]
     Dosage: UNK UKN, UNK
     Route: 048
     Dates: start: 20071001, end: 20071001
  8. EPIRUBICIN HYDROCHLORIDE [Concomitant]
     Dosage: UNK UKN, UNK
     Dates: start: 20060801
  9. TS 1 [Suspect]
     Dates: start: 20081001, end: 20110601
  10. CAPECITABINE [Concomitant]
     Dosage: UNK UKN, UNK
     Route: 048
     Dates: start: 20070301, end: 20070501

REACTIONS (5)
  - ACUTE MYELOID LEUKAEMIA [None]
  - PANCYTOPENIA [None]
  - METASTASES TO LYMPH NODES [None]
  - NEOPLASM MALIGNANT [None]
  - LYMPHADENOPATHY [None]
